FAERS Safety Report 16163278 (Version 3)
Quarter: 2019Q2

REPORT INFORMATION
  Report Type: Report from Study
  Country: US (occurrence: US)
  Receive Date: 20190405
  Receipt Date: 20190520
  Transmission Date: 20190711
  Serious: Yes (Hospitalization)
  Sender: FDA-Public Use
  Company Number: US-EISAI MEDICAL RESEARCH-EC-2019-051678

PATIENT
  Age: 65 Year
  Sex: Female
  Weight: 52.2 kg

DRUGS (3)
  1. LENVIMA [Suspect]
     Active Substance: LENVATINIB
     Route: 048
     Dates: start: 2019
  2. PREDNISONE. [Concomitant]
     Active Substance: PREDNISONE
  3. LENVIMA [Suspect]
     Active Substance: LENVATINIB
     Indication: HEPATOCELLULAR CARCINOMA
     Route: 048
     Dates: start: 20190123, end: 20190326

REACTIONS (16)
  - Sluggishness [Unknown]
  - Malaise [Unknown]
  - Skin disorder [Unknown]
  - Haemorrhage [Recovering/Resolving]
  - Pain [Unknown]
  - Product quality issue [Unknown]
  - Haemoptysis [Unknown]
  - Depression [Unknown]
  - Thirst [Recovered/Resolved]
  - Fatigue [Unknown]
  - Alopecia [Unknown]
  - Blood pressure increased [Not Recovered/Not Resolved]
  - Headache [Unknown]
  - Pain in extremity [Unknown]
  - Cough [Not Recovered/Not Resolved]
  - Rhinorrhoea [Unknown]

NARRATIVE: CASE EVENT DATE: 2019
